FAERS Safety Report 18079193 (Version 4)
Quarter: 2020Q3

REPORT INFORMATION
  Report Type: Spontaneous
  Country: US (occurrence: US)
  Receive Date: 20200728
  Receipt Date: 20200925
  Transmission Date: 20201103
  Serious: No
  Sender: FDA-Public Use
  Company Number: US-BAYER-2020-152093

PATIENT
  Age: 23 Year
  Sex: Female

DRUGS (6)
  1. MIRENA [Suspect]
     Active Substance: LEVONORGESTREL
     Indication: MENORRHAGIA
  2. MISOPROSTOL. [Concomitant]
     Active Substance: MISOPROSTOL
  3. MIRENA [Suspect]
     Active Substance: LEVONORGESTREL
     Indication: CONTRACEPTION
     Dosage: 20 ?G PER DAY, CONTINUOUSLY
     Route: 015
     Dates: start: 20200617, end: 20200724
  4. METRONIDAZOLE. [Concomitant]
     Active Substance: METRONIDAZOLE
  5. NORETHISTERONE ACETATE [Concomitant]
     Active Substance: NORETHINDRONE ACETATE
  6. CIPROFLOXACIN HCL [Concomitant]
     Active Substance: CIPROFLOXACIN HYDROCHLORIDE
     Route: 048

REACTIONS (4)
  - Device expulsion [Recovered/Resolved]
  - Dysmenorrhoea [None]
  - Ovarian cyst [Recovered/Resolved]
  - Tenderness [None]

NARRATIVE: CASE EVENT DATE: 20200116
